FAERS Safety Report 7728269-6 (Version None)
Quarter: 2011Q3

REPORT INFORMATION
  Report Type: 
  Country: None (occurrence: None)
  Receive Date: 20110905
  Receipt Date: 20110829
  Transmission Date: 20111222
  Serious: Yes (Hospitalization)
  Sender: FDA-Public Use
  Company Number: PHHY2011US53228

PATIENT
  Sex: Male

DRUGS (2)
  1. EXTAVIA [Suspect]
     Dosage: 0.25 MG, QOD
     Route: 058
     Dates: start: 20110620, end: 20110704
  2. EXTAVIA [Suspect]
     Indication: SECONDARY PROGRESSIVE MULTIPLE SCLEROSIS
     Dosage: 0.25 MG, QOD
     Route: 058
     Dates: start: 20110429, end: 20110602

REACTIONS (3)
  - MYOCARDIAL INFARCTION [None]
  - FATIGUE [None]
  - CHEST PAIN [None]
